FAERS Safety Report 16273944 (Version 2)
Quarter: 2019Q2

REPORT INFORMATION
  Report Type: Spontaneous
  Country: CH (occurrence: CH)
  Receive Date: 20190506
  Receipt Date: 20190510
  Transmission Date: 20190711
  Serious: Yes (Hospitalization)
  Sender: FDA-Public Use
  Company Number: CH-TEVA-2019-CH-1045610

PATIENT
  Sex: Male

DRUGS (2)
  1. NOVALGIN [METAMIZOLE] [Suspect]
     Active Substance: METAMIZOLE
     Route: 065
  2. TOPIRAMAT-MEPHA [Suspect]
     Active Substance: TOPIRAMATE
     Indication: EPILEPSY
     Dosage: SINCE ONE YEAR

REACTIONS (1)
  - Acute generalised exanthematous pustulosis [Recovering/Resolving]
